FAERS Safety Report 5305398-8 (Version None)
Quarter: 2007Q1

REPORT INFORMATION
  Report Type: 
  Country: None (occurrence: None)
  Receive Date: 20070201
  Receipt Date: 20061111
  Transmission Date: 20070707
  Serious: No
  Sender: FDA-Public Use
  Company Number: 2006PV025024

PATIENT
  Age: 69 Year
  Sex: Female
  Weight: 76.2043 kg

DRUGS (6)
  1. BYETTA [Suspect]
     Indication: DIABETES MELLITUS NON-INSULIN-DEPENDENT
     Dosage: SEE IMAGE
     Route: 058
     Dates: start: 20061024, end: 20061107
  2. BYETTA [Suspect]
     Indication: DIABETES MELLITUS NON-INSULIN-DEPENDENT
     Dosage: SEE IMAGE
     Route: 058
     Dates: start: 20061108, end: 20061203
  3. BYETTA [Suspect]
     Indication: DIABETES MELLITUS NON-INSULIN-DEPENDENT
     Dosage: SEE IMAGE
     Route: 058
     Dates: start: 20061204
  4. BYETTA [Suspect]
  5. AMARYL [Concomitant]
  6. GLUCOPHAGE XR [Concomitant]

REACTIONS (7)
  - BACK PAIN [None]
  - DRUG EFFECT DECREASED [None]
  - HEART RATE INCREASED [None]
  - INJECTION SITE PAIN [None]
  - NAUSEA [None]
  - POLLAKIURIA [None]
  - WEIGHT DECREASED [None]
